FAERS Safety Report 8572613-7 (Version None)
Quarter: 2012Q2

REPORT INFORMATION
  Report Type: 
  Country: None (occurrence: None)
  Receive Date: 20120420
  Receipt Date: 20110726
  Transmission Date: 20120825
  Serious: Yes (Disabling, Other)
  Sender: FDA-Public Use
  Company Number: WAES 1010USA00633

PATIENT
  Age: 34 Year
  Sex: Female
  Weight: 57.1532 kg

DRUGS (3)
  1. ZOLOFT [Concomitant]
  2. SINGULAIR [Suspect]
     Indication: RHINITIS ALLERGIC
     Dosage: 10 MG/DAILY/PO
     Route: 048
     Dates: start: 20100801, end: 20101001
  3. XANAX [Concomitant]

REACTIONS (4)
  - DEPRESSION [None]
  - PANIC ATTACK [None]
  - IRRITABILITY [None]
  - ANXIETY [None]
